FAERS Safety Report 4443685-6 (Version None)
Quarter: 2004Q3

REPORT INFORMATION
  Report Type: 
  Country: None (occurrence: None)
  Receive Date: 20040908
  Receipt Date: 20040819
  Transmission Date: 20050211
  Serious: Yes (Other)
  Sender: FDA-Public Use
  Company Number: GB-ROCHE-378164

PATIENT
  Age: 60 Year
  Sex: Female
  Weight: 110 kg

DRUGS (10)
  1. XELODA [Suspect]
     Dosage: THREE CYCLES COMPLETED. TWO WEEK TREATMENT AND ONE WEEK REST.
     Route: 048
     Dates: start: 20040615
  2. LANSOPRAZOLE [Concomitant]
     Dosage: LONG TERM MEDICATION.
     Route: 048
  3. METOCLOPRAMIDE [Concomitant]
     Dosage: LONG TERM MEDICATION.
     Route: 048
  4. PERINDOPRIL [Concomitant]
     Dosage: LONG TERM MEDICATION.
     Route: 048
  5. FRUSEMIDE [Concomitant]
     Route: 048
  6. SPIRONOLACTONE [Concomitant]
     Route: 048
  7. HYDROXYZINE [Concomitant]
     Route: 048
  8. METFORMIN HCL [Concomitant]
     Route: 048
  9. INSULIN NORDISK MIXTARD (PORK) [Concomitant]
     Dosage: LONG TERM TREATMENT.
     Route: 058
  10. GABAPENTIN [Concomitant]
     Dosage: LONG TERM TREATMENT.
     Route: 048

REACTIONS (1)
  - HYPERLIPIDAEMIA [None]
